FAERS Safety Report 18955570 (Version 2)
Quarter: 2022Q1

REPORT INFORMATION
  Report Type: Spontaneous
  Country: LB (occurrence: LB)
  Receive Date: 20210301
  Receipt Date: 20220303
  Transmission Date: 20220424
  Serious: Yes (Hospitalization)
  Sender: FDA-Public Use
  Company Number: LB-PFIZER INC-2021209494

PATIENT
  Age: 56 Year
  Sex: Female

DRUGS (3)
  1. IBRANCE [Suspect]
     Active Substance: PALBOCICLIB
     Indication: Breast cancer metastatic
     Dosage: 125 MG, CYCLIC (1X/DAY FOR 21 DAYS EVERY 28 DAYS)
     Route: 048
     Dates: start: 201903, end: 20210129
  2. IBRANCE [Suspect]
     Active Substance: PALBOCICLIB
     Dosage: 125 MG, ALTERNATE DAY (125 MG EVERY OTHER DAY)
     Route: 048
     Dates: start: 202102
  3. FEMARA [Concomitant]
     Active Substance: LETROZOLE
     Indication: Breast cancer metastatic
     Dosage: 2.5 MG, 1X/DAY

REACTIONS (5)
  - Pulmonary thrombosis [Unknown]
  - COVID-19 [Unknown]
  - Anaemia [Unknown]
  - Off label use [Unknown]
  - Product use issue [Unknown]
